FAERS Safety Report 8889504 (Version 1)
Quarter: 2012Q4

REPORT INFORMATION
  Report Type: 
  Country: US (occurrence: US)
  Receive Date: 20121107
  Receipt Date: 20121107
  Transmission Date: 20130627
  Serious: Yes (Other)
  Sender: FDA-Public Use
  Company Number: US-JNJFOC-20121011369

PATIENT
  Sex: Male
  Weight: 86.18 kg

DRUGS (1)
  1. INVEGA [Suspect]
     Indication: PRODUCT USED FOR UNKNOWN INDICATION
     Route: 048
     Dates: start: 201209, end: 20121004

REACTIONS (2)
  - Coeliac disease [Not Recovered/Not Resolved]
  - Tremor [Recovered/Resolved]
